FAERS Safety Report 4492114-5 (Version None)
Quarter: 2004Q4

REPORT INFORMATION
  Report Type: 
  Country: None (occurrence: None)
  Receive Date: 20041101
  Receipt Date: 20041018
  Transmission Date: 20050328
  Serious: Yes (Hospitalization, Other)
  Sender: FDA-Public Use
  Company Number: US-JNJFOC-20041006321

PATIENT
  Age: 29 Year
  Sex: Female
  Weight: 50 kg

DRUGS (2)
  1. TYLENOL [Suspect]
     Indication: PAIN
     Dosage: 2000 MG, IN 1 DAY
     Dates: start: 20021101, end: 20021201
  2. DEPO-PROVERA SUSPENSION/INJ [Concomitant]

REACTIONS (24)
  - ANALGESIC DRUG LEVEL ABOVE THERAPEUTIC [None]
  - BLOOD ALCOHOL INCREASED [None]
  - COMA [None]
  - DELIRIUM [None]
  - ENCEPHALOPATHY [None]
  - GENERAL PHYSICAL HEALTH DETERIORATION [None]
  - HAEMODIALYSIS [None]
  - HEADACHE [None]
  - HEPATIC FAILURE [None]
  - HEPATIC NECROSIS [None]
  - INFLUENZA LIKE ILLNESS [None]
  - INTRACRANIAL PRESSURE INCREASED [None]
  - LIVER TRANSPLANT [None]
  - LIVER TRANSPLANT REJECTION [None]
  - MARKEDLY REDUCED DIETARY INTAKE [None]
  - METABOLIC ACIDOSIS [None]
  - MULTI-ORGAN FAILURE [None]
  - MYOCARDIAL INFARCTION [None]
  - NEUROPATHY [None]
  - RENAL FAILURE [None]
  - RESPIRATORY DISORDER [None]
  - TONGUE DISORDER [None]
  - TREMOR [None]
  - VENTRICULAR DYSFUNCTION [None]
